FAERS Safety Report 8053705-8 (Version None)
Quarter: 2011Q4

REPORT INFORMATION
  Report Type: 
  Country: None (occurrence: None)
  Receive Date: 20111213
  Receipt Date: 20111003
  Transmission Date: 20120403
  Serious: No
  Sender: FDA-Public Use
  Company Number: 2011SP046606

PATIENT
  Age: 52 Year
  Sex: Female

DRUGS (6)
  1. LAMICTAL [Concomitant]
  2. SAPHRIS [Suspect]
     Indication: BIPOLAR DISORDER
     Dosage: 10 MG; HS;
     Dates: start: 20080101, end: 20080101
  3. GEODON [Concomitant]
  4. ABILIFY [Concomitant]
  5. LITHIUM [Concomitant]
  6. ZOPAX [Concomitant]

REACTIONS (3)
  - SLEEP APNOEA SYNDROME [None]
  - SEDATION [None]
  - INAPPROPRIATE SCHEDULE OF DRUG ADMINISTRATION [None]
